FAERS Safety Report 15931551 (Version 5)
Quarter: 2019Q2

REPORT INFORMATION
  Report Type: Spontaneous
  Country: NL (occurrence: NL)
  Receive Date: 20190207
  Receipt Date: 20190521
  Transmission Date: 20190711
  Serious: Yes (Other)
  Sender: FDA-Public Use
  Company Number: PHHY2019NL024638

PATIENT
  Age: 14 Year
  Sex: Male

DRUGS (2)
  1. LDK378 [Suspect]
     Active Substance: CERITINIB
     Indication: INFLAMMATORY MYOFIBROBLASTIC TUMOUR
     Dosage: 450 MG/M2, QD
     Route: 065
  2. PARACETAMOL [Interacting]
     Active Substance: ACETAMINOPHEN
     Indication: ABDOMINAL PAIN
     Route: 065

REACTIONS (4)
  - Acute kidney injury [Unknown]
  - Product use in unapproved indication [Unknown]
  - Drug interaction [Unknown]
  - Acute hepatic failure [Recovered/Resolved]
